FAERS Safety Report 5056587-1 (Version None)
Quarter: 2006Q3

REPORT INFORMATION
  Report Type: 
  Country: None (occurrence: None)
  Receive Date: 20060720
  Receipt Date: 20060329
  Transmission Date: 20061208
  Serious: Yes (Death)
  Sender: FDA-Public Use
  Company Number: CH-MERCK-0603CHE00314

PATIENT
  Age: 69 Year
  Sex: Female

DRUGS (3)
  1. INVANZ [Suspect]
     Indication: SEPSIS
     Route: 042
     Dates: start: 20060323, end: 20060326
  2. AMOXICILLIN [Concomitant]
     Indication: SEPSIS
     Route: 042
     Dates: start: 20060322, end: 20060326
  3. TOBRAMYCIN SULFATE [Concomitant]
     Indication: SEPSIS
     Route: 042
     Dates: start: 20060320, end: 20060320

REACTIONS (2)
  - ACUTE RESPIRATORY DISTRESS SYNDROME [None]
  - SEPSIS [None]
